FAERS Safety Report 12337821 (Version 1)
Quarter: 2016Q2

REPORT INFORMATION
  Report Type: Spontaneous
  Country: JP (occurrence: JP)
  Receive Date: 20160505
  Receipt Date: 20160505
  Transmission Date: 20160815
  Serious: Yes (Other)
  Sender: FDA-Public Use
  Company Number: JP-SA-2016SA085425

PATIENT
  Age: 68 Year
  Sex: Female
  Weight: 64 kg

DRUGS (26)
  1. CALCIUM LEVOFOLINATE [Concomitant]
     Active Substance: LEVOLEUCOVORIN CALCIUM
     Indication: COLON CANCER
     Dates: start: 201505
  2. 5-FU [Concomitant]
     Active Substance: FLUOROURACIL
     Indication: COLON CANCER
     Dates: start: 201402
  3. 5-FU [Concomitant]
     Active Substance: FLUOROURACIL
     Indication: COLON CANCER
     Dates: start: 201505
  4. ELPLAT [Suspect]
     Active Substance: OXALIPLATIN
     Indication: COLON CANCER
     Route: 041
     Dates: start: 20160420, end: 20160420
  5. ELPLAT [Suspect]
     Active Substance: OXALIPLATIN
     Indication: COLON CANCER
     Route: 041
     Dates: start: 201402, end: 201507
  6. CALCIUM LEVOFOLINATE [Concomitant]
     Active Substance: LEVOLEUCOVORIN CALCIUM
     Indication: COLON CANCER
     Dates: start: 201402
  7. CALCIUM LEVOFOLINATE [Concomitant]
     Active Substance: LEVOLEUCOVORIN CALCIUM
     Indication: COLON CANCER
     Dates: start: 201512
  8. 5-FU [Concomitant]
     Active Substance: FLUOROURACIL
     Indication: COLON CANCER
     Dates: start: 201501
  9. 5-FU [Concomitant]
     Active Substance: FLUOROURACIL
     Indication: COLON CANCER
     Dates: start: 201512
  10. GRANISETRON [Concomitant]
     Active Substance: GRANISETRON
     Dates: start: 201604, end: 201604
  11. SAXIZON [Concomitant]
     Active Substance: HYDROCORTISONE SODIUM SUCCINATE
     Dates: start: 20160420, end: 20160420
  12. CALCIUM LEVOFOLINATE [Concomitant]
     Active Substance: LEVOLEUCOVORIN CALCIUM
     Indication: COLON CANCER
     Dates: start: 201504
  13. CALCIUM LEVOFOLINATE [Concomitant]
     Active Substance: LEVOLEUCOVORIN CALCIUM
     Indication: COLON CANCER
     Dates: start: 201508
  14. VECTIBIX [Concomitant]
     Active Substance: PANITUMUMAB
     Indication: COLON CANCER
  15. SOLU-MEDROL [Concomitant]
     Active Substance: METHYLPREDNISOLONE SODIUM SUCCINATE
     Dates: start: 20160420, end: 20160420
  16. BOSMIN [Concomitant]
     Active Substance: EPINEPHRINE
     Dates: start: 20160420, end: 20160420
  17. XELODA [Concomitant]
     Active Substance: CAPECITABINE
     Indication: COLON CANCER
     Dates: start: 201504
  18. CALCIUM LEVOFOLINATE [Concomitant]
     Active Substance: LEVOLEUCOVORIN CALCIUM
     Indication: COLON CANCER
     Dates: start: 201407
  19. 5-FU [Concomitant]
     Active Substance: FLUOROURACIL
     Indication: COLON CANCER
     Dates: start: 201407
  20. 5-FU [Concomitant]
     Active Substance: FLUOROURACIL
     Indication: COLON CANCER
     Dates: start: 201604, end: 201604
  21. POLARAMINE [Concomitant]
     Active Substance: DEXCHLORPHENIRAMINE MALEATE
     Dates: start: 20160420
  22. ELPLAT [Suspect]
     Active Substance: OXALIPLATIN
     Indication: COLON CANCER
     Route: 041
     Dates: start: 201604, end: 201604
  23. 5-FU [Concomitant]
     Active Substance: FLUOROURACIL
     Indication: COLON CANCER
     Dates: start: 201504
  24. 5-FU [Concomitant]
     Active Substance: FLUOROURACIL
     Indication: COLON CANCER
     Dates: start: 201508
  25. DEXART [Concomitant]
     Active Substance: DEXAMETHASONE SODIUM PHOSPHATE
     Dates: start: 201604, end: 201604
  26. CALCIUM LEVOFOLINATE [Concomitant]
     Active Substance: LEVOLEUCOVORIN CALCIUM
     Indication: COLON CANCER
     Dates: start: 201501

REACTIONS (5)
  - Rash [Recovered/Resolved]
  - Dyspnoea [Recovering/Resolving]
  - Erythema [Recovered/Resolved]
  - Blood pressure decreased [Recovering/Resolving]
  - Oropharyngeal discomfort [Recovering/Resolving]

NARRATIVE: CASE EVENT DATE: 20160420
